FAERS Safety Report 9848529 (Version 1)
Quarter: 2013Q4

REPORT INFORMATION
  Report Type: Spontaneous
  Country: US (occurrence: None)
  Receive Date: 20131224
  Receipt Date: 20131224
  Transmission Date: 20140711
  Serious: Yes (Other)
  Sender: FDA-Public Use
  Company Number: PHEH2013US001710

PATIENT
  Age: 50 Year
  Sex: Male

DRUGS (7)
  1. CLOZARIL [Suspect]
  2. SEROQUEL (QUETIAPINE FUMARATE) [Concomitant]
  3. XANAX (ALPRAZOLAM) [Concomitant]
  4. GABAPENTIN (GABAPENTIN) [Concomitant]
  5. LISINOPRIL (LISINOPRIL) [Concomitant]
  6. METFORMIN (METFORMIN) [Concomitant]
  7. INSULIN (INSULIN) [Concomitant]

REACTIONS (8)
  - Delusion [None]
  - Hallucination [None]
  - Paranoia [None]
  - Hyperhidrosis [None]
  - Anxiety [None]
  - Pain [None]
  - Headache [None]
  - White blood cell count increased [None]
